FAERS Safety Report 11364872 (Version 1)
Quarter: 2015Q3

REPORT INFORMATION
  Report Type: Spontaneous
  Country: GB (occurrence: GB)
  Receive Date: 20150811
  Receipt Date: 20150811
  Transmission Date: 20151125
  Serious: Yes (Other)
  Sender: FDA-Public Use
  Company Number: GB-PFIZER INC-2015262616

PATIENT

DRUGS (1)
  1. DEPO-PROVERA [Suspect]
     Active Substance: MEDROXYPROGESTERONE ACETATE
     Indication: CONTRACEPTION
     Dosage: 150MG/ML
     Route: 064
     Dates: start: 20140926

REACTIONS (3)
  - Intestinal obstruction [Recovering/Resolving]
  - Maternal exposure during pregnancy [Recovering/Resolving]
  - Meconium plug syndrome [Recovering/Resolving]
